FAERS Safety Report 9501802 (Version 2)
Quarter: 2013Q3

REPORT INFORMATION
  Report Type: Spontaneous
  Country: JP (occurrence: JP)
  Receive Date: 20130905
  Receipt Date: 20130905
  Transmission Date: 20140515
  Serious: Yes (Hospitalization)
  Sender: FDA-Public Use
  Company Number: JP-B.I. PHARMACEUTICALS,INC./RIDGEFIELD-2013-BI-27125NB

PATIENT
  Age: 76 Year
  Sex: Female
  Weight: 51.8 kg

DRUGS (5)
  1. PRAZAXA [Suspect]
     Indication: ATRIAL FIBRILLATION
     Dosage: 220 MG
     Route: 065
  2. PRAZAXA [Suspect]
     Dosage: 220 MG
     Route: 065
  3. PRAZAXA [Suspect]
     Dosage: 220 MG
     Route: 048
  4. DIOVAN [Suspect]
     Indication: HYPERTENSION
     Dosage: 80 MG
     Route: 048
  5. BAYASPIRIN [Suspect]
     Indication: CEREBROVASCULAR ACCIDENT
     Dosage: 100 MG
     Route: 048

REACTIONS (2)
  - Fracture [Unknown]
  - Renal impairment [Unknown]
